FAERS Safety Report 12741516 (Version 1)
Quarter: 2016Q3

REPORT INFORMATION
  Report Type: Report from Study
  Country: US (occurrence: US)
  Receive Date: 20160914
  Receipt Date: 20160914
  Transmission Date: 20161109
  Serious: Yes (Other)
  Sender: FDA-Public Use
  Company Number: US-ROCHE-1828655

PATIENT
  Age: 55 Year
  Sex: Male
  Weight: 76.4 kg

DRUGS (116)
  1. DOCETAXEL. [Suspect]
     Active Substance: DOCETAXEL
     Dosage: COURSE 36
     Route: 065
     Dates: start: 20120130
  2. PREDNISONE. [Suspect]
     Active Substance: PREDNISONE
     Dosage: COURSE 13
     Route: 065
     Dates: start: 20100913
  3. PREDNISONE. [Suspect]
     Active Substance: PREDNISONE
     Dosage: COURSE 37
     Route: 065
     Dates: start: 20120221
  4. LENALIDOMIDE [Suspect]
     Active Substance: LENALIDOMIDE
     Indication: PROSTATE CANCER
     Dosage: COURSE 1?LAST DOSE RECEIVED ON 09/APR/2012
     Route: 065
     Dates: start: 20091222
  5. LENALIDOMIDE [Suspect]
     Active Substance: LENALIDOMIDE
     Dosage: COURSE 5
     Route: 065
     Dates: start: 20100322
  6. LENALIDOMIDE [Suspect]
     Active Substance: LENALIDOMIDE
     Dosage: COURSE 21
     Route: 065
     Dates: start: 20110307
  7. BEVACIZUMAB [Suspect]
     Active Substance: BEVACIZUMAB
     Dosage: COURSE 32
     Route: 065
     Dates: start: 20111031
  8. BEVACIZUMAB [Suspect]
     Active Substance: BEVACIZUMAB
     Dosage: COURSE 37
     Route: 065
     Dates: start: 20120221
  9. DOCETAXEL. [Suspect]
     Active Substance: DOCETAXEL
     Indication: PROSTATE CANCER
     Dosage: COURSE 1?LAST DOSE RECEIVED ON 09/APR/2012
     Route: 065
     Dates: start: 20091222
  10. DOCETAXEL. [Suspect]
     Active Substance: DOCETAXEL
     Dosage: COURSE 5
     Route: 065
     Dates: start: 20100322
  11. DOCETAXEL. [Suspect]
     Active Substance: DOCETAXEL
     Dosage: COURSE 6
     Route: 065
     Dates: start: 20100412
  12. DOCETAXEL. [Suspect]
     Active Substance: DOCETAXEL
     Dosage: COURSE 28
     Route: 065
     Dates: start: 20110808
  13. DOCETAXEL. [Suspect]
     Active Substance: DOCETAXEL
     Dosage: COURSE 29
     Route: 065
     Dates: start: 20110829
  14. DOCETAXEL. [Suspect]
     Active Substance: DOCETAXEL
     Dosage: COURSE 31
     Route: 065
     Dates: start: 20111011
  15. DOCETAXEL. [Suspect]
     Active Substance: DOCETAXEL
     Dosage: COURSE 35
     Route: 065
     Dates: start: 20120109
  16. PREDNISONE. [Suspect]
     Active Substance: PREDNISONE
     Indication: PROSTATE CANCER
     Dosage: COURSE 1?LAST DOSE RECEIVED ON 09/APR/2012
     Route: 065
     Dates: start: 20091222
  17. PREDNISONE. [Suspect]
     Active Substance: PREDNISONE
     Dosage: COURSE 2
     Route: 065
     Dates: start: 20100111
  18. PREDNISONE. [Suspect]
     Active Substance: PREDNISONE
     Dosage: COURSE 5
     Route: 065
     Dates: start: 20100322
  19. PREDNISONE. [Suspect]
     Active Substance: PREDNISONE
     Dosage: COURSE 8
     Route: 065
     Dates: start: 20100601
  20. PREDNISONE. [Suspect]
     Active Substance: PREDNISONE
     Dosage: COURSE 14
     Route: 065
     Dates: start: 20101004
  21. PREDNISONE. [Suspect]
     Active Substance: PREDNISONE
     Dosage: COURSE 22
     Route: 065
     Dates: start: 20110328
  22. PREDNISONE. [Suspect]
     Active Substance: PREDNISONE
     Dosage: COURSE 24
     Route: 065
     Dates: start: 20110516
  23. PREDNISONE. [Suspect]
     Active Substance: PREDNISONE
     Dosage: COURSE 26
     Route: 065
     Dates: start: 20110627
  24. PREDNISONE. [Suspect]
     Active Substance: PREDNISONE
     Dosage: COURSE 28
     Route: 065
     Dates: start: 20110808
  25. PREDNISONE. [Suspect]
     Active Substance: PREDNISONE
     Dosage: COURSE 31
     Route: 065
     Dates: start: 20111011
  26. PREDNISONE. [Suspect]
     Active Substance: PREDNISONE
     Dosage: COURSE 33
     Route: 065
     Dates: start: 20111128
  27. PREDNISONE. [Suspect]
     Active Substance: PREDNISONE
     Dosage: COURSE 38
     Route: 065
     Dates: start: 20120322
  28. LENALIDOMIDE [Suspect]
     Active Substance: LENALIDOMIDE
     Dosage: COURSE 3
     Route: 065
     Dates: start: 20100201
  29. LENALIDOMIDE [Suspect]
     Active Substance: LENALIDOMIDE
     Dosage: COURSE 13
     Route: 065
     Dates: start: 20100913
  30. LENALIDOMIDE [Suspect]
     Active Substance: LENALIDOMIDE
     Dosage: COURSE 20
     Route: 065
     Dates: start: 20110214
  31. LENALIDOMIDE [Suspect]
     Active Substance: LENALIDOMIDE
     Dosage: COURSE 23
     Route: 065
     Dates: start: 20110418
  32. LENALIDOMIDE [Suspect]
     Active Substance: LENALIDOMIDE
     Dosage: COURSE 24
     Route: 065
     Dates: start: 20110516
  33. LENALIDOMIDE [Suspect]
     Active Substance: LENALIDOMIDE
     Dosage: COURSE 26
     Route: 065
     Dates: start: 20110627
  34. LENALIDOMIDE [Suspect]
     Active Substance: LENALIDOMIDE
     Dosage: COURSE 33
     Route: 065
     Dates: start: 20111128
  35. BEVACIZUMAB [Suspect]
     Active Substance: BEVACIZUMAB
     Dosage: COURSE 13
     Route: 065
     Dates: start: 20100913
  36. BEVACIZUMAB [Suspect]
     Active Substance: BEVACIZUMAB
     Dosage: COURSE 14
     Route: 065
     Dates: start: 20101004
  37. BEVACIZUMAB [Suspect]
     Active Substance: BEVACIZUMAB
     Dosage: COURSE 23
     Route: 065
     Dates: start: 20110418
  38. BEVACIZUMAB [Suspect]
     Active Substance: BEVACIZUMAB
     Dosage: COURSE 25
     Route: 065
     Dates: start: 20110606
  39. DOCETAXEL. [Suspect]
     Active Substance: DOCETAXEL
     Dosage: COURSE 4
     Route: 065
     Dates: start: 20100222
  40. DOCETAXEL. [Suspect]
     Active Substance: DOCETAXEL
     Dosage: COURSE 8
     Route: 065
     Dates: start: 20100601
  41. PREDNISONE. [Suspect]
     Active Substance: PREDNISONE
     Dosage: COURSE 4
     Route: 065
     Dates: start: 20100222
  42. PREDNISONE. [Suspect]
     Active Substance: PREDNISONE
     Dosage: COURSE 1
     Route: 065
     Dates: start: 20111031
  43. PREDNISONE. [Suspect]
     Active Substance: PREDNISONE
     Dosage: COURSE 36
     Route: 065
     Dates: start: 20120130
  44. LENALIDOMIDE [Suspect]
     Active Substance: LENALIDOMIDE
     Dosage: COURSE 2
     Route: 065
     Dates: start: 20100111
  45. LENALIDOMIDE [Suspect]
     Active Substance: LENALIDOMIDE
     Dosage: COURSE 14
     Route: 065
     Dates: start: 20101004
  46. BEVACIZUMAB [Suspect]
     Active Substance: BEVACIZUMAB
     Dosage: COURSE 2
     Route: 065
     Dates: start: 20100111
  47. BEVACIZUMAB [Suspect]
     Active Substance: BEVACIZUMAB
     Dosage: COURSE 6
     Route: 065
     Dates: start: 20100412
  48. BEVACIZUMAB [Suspect]
     Active Substance: BEVACIZUMAB
     Dosage: COURSE 8
     Route: 065
     Dates: start: 20100601
  49. BEVACIZUMAB [Suspect]
     Active Substance: BEVACIZUMAB
     Dosage: COURSE 30
     Route: 065
     Dates: start: 20110919
  50. DOCETAXEL. [Suspect]
     Active Substance: DOCETAXEL
     Dosage: COURSE 3
     Route: 065
     Dates: start: 20100201
  51. DOCETAXEL. [Suspect]
     Active Substance: DOCETAXEL
     Dosage: COURSE 9
     Route: 065
     Dates: start: 20100621
  52. DOCETAXEL. [Suspect]
     Active Substance: DOCETAXEL
     Dosage: COURSE 16
     Route: 065
     Dates: start: 20101122
  53. DOCETAXEL. [Suspect]
     Active Substance: DOCETAXEL
     Dosage: COURSE 23
     Route: 065
     Dates: start: 20110418
  54. DOCETAXEL. [Suspect]
     Active Substance: DOCETAXEL
     Dosage: COURSE 33
     Route: 065
     Dates: start: 20111128
  55. PREDNISONE. [Suspect]
     Active Substance: PREDNISONE
     Dosage: COURSE 3
     Route: 065
     Dates: start: 20100201
  56. PREDNISONE. [Suspect]
     Active Substance: PREDNISONE
     Dosage: COURSE 6
     Route: 065
     Dates: start: 20100412
  57. PREDNISONE. [Suspect]
     Active Substance: PREDNISONE
     Dosage: COURSE 11
     Route: 065
     Dates: start: 20100802
  58. PREDNISONE. [Suspect]
     Active Substance: PREDNISONE
     Dosage: COURSE 30
     Route: 065
     Dates: start: 20110919
  59. LENALIDOMIDE [Suspect]
     Active Substance: LENALIDOMIDE
     Dosage: COURSE 11
     Route: 065
     Dates: start: 20100802
  60. LENALIDOMIDE [Suspect]
     Active Substance: LENALIDOMIDE
     Dosage: COURSE 29
     Route: 065
     Dates: start: 20110829
  61. LENALIDOMIDE [Suspect]
     Active Substance: LENALIDOMIDE
     Dosage: COURSE 30
     Route: 065
     Dates: start: 20110919
  62. BEVACIZUMAB [Suspect]
     Active Substance: BEVACIZUMAB
     Indication: PROSTATE CANCER
     Dosage: COURSE 1?LAST DOSE RECEIVED ON 09/APR/2012
     Route: 065
     Dates: start: 20091222
  63. BEVACIZUMAB [Suspect]
     Active Substance: BEVACIZUMAB
     Dosage: COURSE 5
     Route: 065
     Dates: start: 20100322
  64. BEVACIZUMAB [Suspect]
     Active Substance: BEVACIZUMAB
     Dosage: COURSE 22
     Route: 065
     Dates: start: 20110328
  65. BEVACIZUMAB [Suspect]
     Active Substance: BEVACIZUMAB
     Dosage: COURSE 27
     Route: 065
     Dates: start: 20110718
  66. BEVACIZUMAB [Suspect]
     Active Substance: BEVACIZUMAB
     Dosage: COURSE 1
     Route: 065
     Dates: start: 20110829
  67. DOCETAXEL. [Suspect]
     Active Substance: DOCETAXEL
     Dosage: COURSE 24
     Route: 065
     Dates: start: 20110516
  68. DOCETAXEL. [Suspect]
     Active Substance: DOCETAXEL
     Dosage: COURSE 26
     Route: 065
     Dates: start: 20110627
  69. DOCETAXEL. [Suspect]
     Active Substance: DOCETAXEL
     Dosage: COURSE 30
     Route: 065
     Dates: start: 20110919
  70. LENALIDOMIDE [Suspect]
     Active Substance: LENALIDOMIDE
     Dosage: COURSE 8
     Route: 065
     Dates: start: 20100601
  71. LENALIDOMIDE [Suspect]
     Active Substance: LENALIDOMIDE
     Dosage: COURSE 9
     Route: 065
     Dates: start: 20100621
  72. LENALIDOMIDE [Suspect]
     Active Substance: LENALIDOMIDE
     Dosage: COURSE 32
     Route: 065
     Dates: start: 20111031
  73. LENALIDOMIDE [Suspect]
     Active Substance: LENALIDOMIDE
     Dosage: COURSE 37
     Route: 065
     Dates: start: 20120221
  74. BEVACIZUMAB [Suspect]
     Active Substance: BEVACIZUMAB
     Dosage: COURSE 3
     Route: 065
     Dates: start: 20100201
  75. BEVACIZUMAB [Suspect]
     Active Substance: BEVACIZUMAB
     Dosage: COURSE 4
     Route: 065
     Dates: start: 20100222
  76. BEVACIZUMAB [Suspect]
     Active Substance: BEVACIZUMAB
     Dosage: COURSE 15
     Route: 065
     Dates: start: 20101101
  77. BEVACIZUMAB [Suspect]
     Active Substance: BEVACIZUMAB
     Dosage: COURSE 16
     Route: 065
     Dates: start: 20101122
  78. BEVACIZUMAB [Suspect]
     Active Substance: BEVACIZUMAB
     Dosage: COURSE 24
     Route: 065
     Dates: start: 20110516
  79. BEVACIZUMAB [Suspect]
     Active Substance: BEVACIZUMAB
     Dosage: COURSE 33
     Route: 065
     Dates: start: 20111128
  80. BEVACIZUMAB [Suspect]
     Active Substance: BEVACIZUMAB
     Dosage: COURSE 38
     Route: 065
     Dates: start: 20120322
  81. DOCETAXEL. [Suspect]
     Active Substance: DOCETAXEL
     Dosage: COURSE 11
     Route: 065
     Dates: start: 20100802
  82. DOCETAXEL. [Suspect]
     Active Substance: DOCETAXEL
     Dosage: COURSE 15
     Route: 065
     Dates: start: 20101101
  83. PREDNISONE. [Suspect]
     Active Substance: PREDNISONE
     Dosage: COURSE 15
     Route: 065
     Dates: start: 20101101
  84. PREDNISONE. [Suspect]
     Active Substance: PREDNISONE
     Dosage: COURSE 21
     Route: 065
     Dates: start: 20110307
  85. PREDNISONE. [Suspect]
     Active Substance: PREDNISONE
     Dosage: COURSE 29
     Route: 065
     Dates: start: 20110829
  86. PREDNISONE. [Suspect]
     Active Substance: PREDNISONE
     Dosage: COURSE 35
     Route: 065
     Dates: start: 20120109
  87. LENALIDOMIDE [Suspect]
     Active Substance: LENALIDOMIDE
     Dosage: COURSE 15
     Route: 065
     Dates: start: 20101101
  88. LENALIDOMIDE [Suspect]
     Active Substance: LENALIDOMIDE
     Dosage: COURSE 16
     Route: 065
     Dates: start: 20101122
  89. LENALIDOMIDE [Suspect]
     Active Substance: LENALIDOMIDE
     Dosage: COURSE 22
     Route: 065
     Dates: start: 20110328
  90. LENALIDOMIDE [Suspect]
     Active Substance: LENALIDOMIDE
     Dosage: COURSE 27
     Route: 065
     Dates: start: 20110718
  91. LENALIDOMIDE [Suspect]
     Active Substance: LENALIDOMIDE
     Dosage: COURSE 36
     Route: 065
     Dates: start: 20120130
  92. BEVACIZUMAB [Suspect]
     Active Substance: BEVACIZUMAB
     Dosage: COURSE 9
     Route: 065
     Dates: start: 20100621
  93. BEVACIZUMAB [Suspect]
     Active Substance: BEVACIZUMAB
     Dosage: COURSE 20
     Route: 065
     Dates: start: 20110214
  94. BEVACIZUMAB [Suspect]
     Active Substance: BEVACIZUMAB
     Dosage: COURSE 21
     Route: 065
     Dates: start: 20110307
  95. BEVACIZUMAB [Suspect]
     Active Substance: BEVACIZUMAB
     Dosage: COURSE 35
     Route: 065
     Dates: start: 20120109
  96. DOCETAXEL. [Suspect]
     Active Substance: DOCETAXEL
     Dosage: COURSE 20
     Route: 065
     Dates: start: 20110214
  97. DOCETAXEL. [Suspect]
     Active Substance: DOCETAXEL
     Dosage: COURSE 22
     Route: 065
     Dates: start: 20110328
  98. DOCETAXEL. [Suspect]
     Active Substance: DOCETAXEL
     Dosage: COURSE 25
     Route: 065
     Dates: start: 20110606
  99. DOCETAXEL. [Suspect]
     Active Substance: DOCETAXEL
     Dosage: COURSE 37
     Route: 065
     Dates: start: 20120221
  100. PREDNISONE. [Suspect]
     Active Substance: PREDNISONE
     Dosage: COURSE 24
     Route: 065
     Dates: start: 20110606
  101. PREDNISONE. [Suspect]
     Active Substance: PREDNISONE
     Dosage: COURSE 27
     Route: 065
     Dates: start: 20110718
  102. LENALIDOMIDE [Suspect]
     Active Substance: LENALIDOMIDE
     Dosage: COURSE 4
     Route: 065
     Dates: start: 20100222
  103. LENALIDOMIDE [Suspect]
     Active Substance: LENALIDOMIDE
     Dosage: COURSE 6
     Route: 065
     Dates: start: 20100412
  104. LENALIDOMIDE [Suspect]
     Active Substance: LENALIDOMIDE
     Dosage: COURSE 28
     Route: 065
     Dates: start: 20110808
  105. BEVACIZUMAB [Suspect]
     Active Substance: BEVACIZUMAB
     Dosage: COURSE 11
     Route: 065
     Dates: start: 20100802
  106. BEVACIZUMAB [Suspect]
     Active Substance: BEVACIZUMAB
     Dosage: COURSE 26
     Route: 065
     Dates: start: 20110627
  107. BEVACIZUMAB [Suspect]
     Active Substance: BEVACIZUMAB
     Dosage: COURSE 28
     Route: 065
     Dates: start: 20110808
  108. BEVACIZUMAB [Suspect]
     Active Substance: BEVACIZUMAB
     Dosage: COURSE 31
     Route: 065
     Dates: start: 20111011
  109. DOCETAXEL. [Suspect]
     Active Substance: DOCETAXEL
     Dosage: COURSE 2
     Route: 065
     Dates: start: 20100111
  110. PREDNISONE. [Suspect]
     Active Substance: PREDNISONE
     Dosage: COURSE 9
     Route: 065
     Dates: start: 20100621
  111. PREDNISONE. [Suspect]
     Active Substance: PREDNISONE
     Dosage: COURSE 16
     Route: 065
     Dates: start: 20101122
  112. PREDNISONE. [Suspect]
     Active Substance: PREDNISONE
     Dosage: COURSE 20
     Route: 065
     Dates: start: 20110214
  113. PREDNISONE. [Suspect]
     Active Substance: PREDNISONE
     Dosage: COURSE 23
     Route: 065
     Dates: start: 20110418
  114. LENALIDOMIDE [Suspect]
     Active Substance: LENALIDOMIDE
     Dosage: COURSE 25
     Route: 065
     Dates: start: 20110606
  115. LENALIDOMIDE [Suspect]
     Active Substance: LENALIDOMIDE
     Dosage: COURSE 31
     Route: 065
     Dates: start: 20111011
  116. LENALIDOMIDE [Suspect]
     Active Substance: LENALIDOMIDE
     Dosage: COURSE 35
     Route: 065
     Dates: start: 20120109

REACTIONS (7)
  - Febrile neutropenia [Unknown]
  - Pain [Unknown]
  - Neutrophil count decreased [Unknown]
  - Back pain [Unknown]
  - Lung infection [Unknown]
  - Skin infection [Unknown]
  - Anaemia [Unknown]
